FAERS Safety Report 21879392 (Version 1)
Quarter: 2023Q1

REPORT INFORMATION
  Report Type: Spontaneous
  Country: CA (occurrence: None)
  Receive Date: 20230117
  Receipt Date: 20230117
  Transmission Date: 20230418
  Serious: Yes (Life-Threatening)
  Sender: FDA-Public Use
  Company Number: None

PATIENT
  Age: 61 Year
  Sex: Female
  Weight: 62.1 kg

DRUGS (2)
  1. REPATHA [Suspect]
     Active Substance: EVOLOCUMAB
     Indication: Low density lipoprotein increased
     Dosage: OTHER FREQUENCY : TWICE A MONTH;?OTHER ROUTE : INJECTED INTO STOMACH AREA;?
     Route: 050
     Dates: start: 20221204, end: 20221204
  2. predinone [Concomitant]

REACTIONS (5)
  - Rash [None]
  - Urticaria [None]
  - Swelling of eyelid [None]
  - Eyelid irritation [None]
  - Documented hypersensitivity to administered product [None]

NARRATIVE: CASE EVENT DATE: 20221205
